FAERS Safety Report 10194051 (Version 1)
Quarter: 2014Q2

REPORT INFORMATION
  Report Type: Spontaneous
  Country: US (occurrence: US)
  Receive Date: 20140524
  Receipt Date: 20140524
  Transmission Date: 20141212
  Serious: No
  Sender: FDA-Public Use
  Company Number: US-SANOFI-AVENTIS-2013SA051883

PATIENT
  Age: 52 Year
  Sex: Male

DRUGS (14)
  1. LANTUS [Suspect]
     Dosage: DOSE:25 UNIT(S)
     Route: 065
  2. FENOFIBRATE [Concomitant]
  3. IBUPROFEN TABLETS [Concomitant]
     Route: 048
  4. PODOFILOX [Concomitant]
     Indication: PRURITUS
     Dosage: DODE - 2 DOSES
     Route: 061
     Dates: start: 20121116, end: 20121116
  5. METFORMIN [Concomitant]
     Route: 048
  6. FISH OIL [Concomitant]
     Route: 048
  7. ASPIRIN ^BAYER^ [Concomitant]
  8. RANITIDINE [Concomitant]
     Route: 048
  9. CILOSTAZOL [Concomitant]
     Route: 048
  10. ATORVASTATIN [Concomitant]
     Route: 048
  11. CARVEDILOL [Concomitant]
  12. LISINOPRIL [Concomitant]
  13. HYDROCHLOROTHIAZIDE [Concomitant]
     Route: 048
  14. HUMALOG [Concomitant]

REACTIONS (5)
  - Injection site pain [Unknown]
  - Tremor [Unknown]
  - Hypersensitivity [Unknown]
  - Pruritus [Unknown]
  - Drug interaction [Unknown]
